FAERS Safety Report 11746321 (Version 4)
Quarter: 2018Q2

REPORT INFORMATION
  Report Type: Spontaneous
  Country: US (occurrence: US)
  Receive Date: 20151117
  Receipt Date: 20180503
  Transmission Date: 20180711
  Serious: Yes (Hospitalization, Disabling)
  Sender: FDA-Public Use
  Company Number: US-ENDO PHARMACEUTICALS INC.-2015-004140

PATIENT
  Age: 60 Year
  Sex: Male
  Weight: 107.5 kg

DRUGS (2)
  1. TESTIM [Suspect]
     Active Substance: TESTOSTERONE
     Indication: ANDROGEN REPLACEMENT THERAPY
     Dosage: UNK UNKNOWN, UNKNOWN
     Route: 062
  2. FORTESTA [Suspect]
     Active Substance: TESTOSTERONE
     Indication: ANDROGEN REPLACEMENT THERAPY
     Dosage: UNK UNKNOWN, DAILY
     Route: 061
     Dates: start: 20150120

REACTIONS (4)
  - Acute myocardial infarction [Not Recovered/Not Resolved]
  - Pericarditis [Unknown]
  - Intracardiac thrombus [Unknown]
  - Accelerated hypertension [Unknown]

NARRATIVE: CASE EVENT DATE: 20150530
